FAERS Safety Report 7988124-3 (Version None)
Quarter: 2011Q4

REPORT INFORMATION
  Report Type: 
  Country: None (occurrence: None)
  Receive Date: 20111216
  Receipt Date: 20110613
  Transmission Date: 20120403
  Serious: No
  Sender: FDA-Public Use
  Company Number: US-BRISTOL-MYERS SQUIBB COMPANY-15829153

PATIENT
  Age: 5 Decade
  Sex: Male

DRUGS (1)
  1. ABILIFY [Suspect]
     Dosage: ABILIFY 1 MG AND AFTER INCREASING THE DOSE TO 2 MG,ABILIFY DOSE WAS DECREASED BACK TO 1 MG

REACTIONS (1)
  - RASH [None]
